FAERS Safety Report 5798351-1 (Version None)
Quarter: 2008Q3

REPORT INFORMATION
  Report Type: 
  Country: None (occurrence: None)
  Receive Date: 20080702
  Receipt Date: 20080627
  Transmission Date: 20090109
  Serious: Yes (Other)
  Sender: FDA-Public Use
  Company Number: DE-AVENTIS-200711774DE

PATIENT
  Age: 48 Year
  Sex: Male

DRUGS (1)
  1. ARAVA [Suspect]
     Dosage: DOSE: NOT REPORTED
     Route: 048

REACTIONS (2)
  - AMNIOCENTESIS ABNORMAL [None]
  - PATERNAL DRUGS AFFECTING FOETUS [None]
